FAERS Safety Report 5503634-6 (Version None)
Quarter: 2007Q4

REPORT INFORMATION
  Report Type: 
  Country: None (occurrence: None)
  Receive Date: 20071101
  Receipt Date: 20071022
  Transmission Date: 20080405
  Serious: Yes (Other)
  Sender: FDA-Public Use
  Company Number: JP-SANOFI-SYNTHELABO-A01200712140

PATIENT
  Age: 76 Year
  Sex: Female

DRUGS (4)
  1. METOCLOPRAMIDE [Concomitant]
     Dosage: UNK
     Route: 065
     Dates: start: 20071003, end: 20071017
  2. LEUCOVORIN CALCIUM [Suspect]
     Dosage: UNK
     Route: 042
     Dates: start: 20071017, end: 20071018
  3. OXALIPLATIN [Suspect]
     Dosage: UNK
     Route: 042
     Dates: start: 20071017, end: 20071017
  4. FLUOROURACIL [Suspect]
     Dosage: UNK
     Route: 042
     Dates: start: 20071017, end: 20071018

REACTIONS (1)
  - DEPRESSED LEVEL OF CONSCIOUSNESS [None]
